FAERS Safety Report 17633289 (Version 1)
Quarter: 2020Q2

REPORT INFORMATION
  Report Type: Report from Study
  Country: US (occurrence: US)
  Receive Date: 20200406
  Receipt Date: 20200406
  Transmission Date: 20200713
  Serious: No
  Sender: FDA-Public Use
  Company Number: US-BIOVITRUM-2020US1370

PATIENT
  Age: 15 Year
  Sex: Female

DRUGS (2)
  1. KINERET [Suspect]
     Active Substance: ANAKINRA
     Indication: JUVENILE IDIOPATHIC ARTHRITIS
     Dosage: 100 MG/0.67 ML
     Route: 058
     Dates: start: 20200313
  2. KINERET [Suspect]
     Active Substance: ANAKINRA
     Dates: start: 20200317

REACTIONS (4)
  - Off label use [Not Recovered/Not Resolved]
  - Rash [Unknown]
  - Injection site pain [Unknown]
  - Burning sensation [Unknown]

NARRATIVE: CASE EVENT DATE: 20200313
